FAERS Safety Report 10584431 (Version 1)
Quarter: 2014Q4

REPORT INFORMATION
  Report Type: Spontaneous
  Country: US (occurrence: None)
  Receive Date: 20141113
  Receipt Date: 20141113
  Transmission Date: 20150529
  Serious: Yes (Death, Disabling)
  Sender: FDA-Public Use
  Company Number: None

PATIENT
  Age: 87 Year
  Sex: Male
  Weight: 61.24 kg

DRUGS (2)
  1. CRESTOR [Suspect]
     Active Substance: ROSUVASTATIN CALCIUM
     Indication: HEART DISEASE CONGENITAL
  2. LIPITOR [Suspect]
     Active Substance: ATORVASTATIN CALCIUM
     Indication: HEART DISEASE CONGENITAL
     Dosage: 3+ YEARS.

REACTIONS (11)
  - Paraesthesia [None]
  - Gait disturbance [None]
  - Muscular weakness [None]
  - Functional gastrointestinal disorder [None]
  - Myocardial infarction [None]
  - Therapy cessation [None]
  - Reversed hot-cold sensation [None]
  - Immobile [None]
  - Diarrhoea [None]
  - Neuropathy peripheral [None]
  - Constipation [None]

NARRATIVE: CASE EVENT DATE: 20141014
